FAERS Safety Report 4412889-0 (Version None)
Quarter: 2004Q3

REPORT INFORMATION
  Report Type: 
  Country: None (occurrence: None)
  Receive Date: 20040730
  Receipt Date: 20040730
  Transmission Date: 20050211
  Serious: No
  Sender: FDA-Public Use
  Company Number: None

PATIENT
  Age: 78 Year
  Sex: Male

DRUGS (1)
  1. ZOLADEX [Suspect]
     Indication: PROSTATE CANCER
     Dosage: 10.8 MG SYN Q 3 MONTHS

REACTIONS (4)
  - ARTHRALGIA [None]
  - FATIGUE [None]
  - NAUSEA [None]
  - NECK PAIN [None]
